FAERS Safety Report 6582123-4 (Version None)
Quarter: 2010Q1

REPORT INFORMATION
  Report Type: 
  Country: None (occurrence: None)
  Receive Date: 20100212
  Receipt Date: 20100212
  Transmission Date: 20100710
  Serious: Yes (Hospitalization)
  Sender: FDA-Public Use
  Company Number: None

PATIENT
  Age: 40 Year
  Sex: Female

DRUGS (1)
  1. ATRIPLA [Suspect]
     Indication: HIV INFECTION
     Dosage: 600/200/300; ONCE PO QPM
     Dates: start: 20100111, end: 20100118

REACTIONS (6)
  - HYPOAESTHESIA ORAL [None]
  - ORAL DISORDER [None]
  - PAIN [None]
  - PARAESTHESIA ORAL [None]
  - PRURITUS [None]
  - RASH MACULO-PAPULAR [None]
